FAERS Safety Report 9763779 (Version 3)
Quarter: 2014Q1

REPORT INFORMATION
  Report Type: Spontaneous
  Country: US (occurrence: US)
  Receive Date: 20131216
  Receipt Date: 20140218
  Transmission Date: 20141002
  Serious: No
  Sender: FDA-Public Use
  Company Number: US-BIOGENIDEC-2013BI110791

PATIENT
  Age: 68 Year
  Sex: Female

DRUGS (8)
  1. TECFIDERA [Suspect]
     Indication: MULTIPLE SCLEROSIS
     Route: 048
     Dates: start: 20130620
  2. ASPIRIN [Concomitant]
  3. BACLOFEN [Concomitant]
  4. LISINOPRIL [Concomitant]
  5. LOVASTATIN [Concomitant]
  6. VITAMIN B12 [Concomitant]
  7. VIT D3 [Concomitant]
  8. VIT E [Concomitant]

REACTIONS (1)
  - Stomatitis [Unknown]
